FAERS Safety Report 23572118 (Version 4)
Quarter: 2024Q4

REPORT INFORMATION
  Report Type: Spontaneous
  Country: US (occurrence: US)
  Receive Date: 20240227
  Receipt Date: 20241031
  Transmission Date: 20250115
  Serious: Yes (Other)
  Sender: AVADEL CNS PHARMACEUTICALS, LLC
  Company Number: US-AVADEL CNS PHARMACEUTICALS, LLC-2024AVA00160

PATIENT
  Sex: Female
  Weight: 79.274 kg

DRUGS (40)
  1. LUMRYZ [Suspect]
     Active Substance: SODIUM OXYBATE
     Indication: Narcolepsy
     Dosage: 4.5 G, ONCE NIGHTLY
     Route: 048
     Dates: start: 20240130, end: 202401
  2. LUMRYZ [Suspect]
     Active Substance: SODIUM OXYBATE
     Indication: Rapid eye movement sleep behaviour disorder
  3. LUMRYZ [Suspect]
     Active Substance: SODIUM OXYBATE
     Indication: Narcolepsy
     Dosage: 6 G, ONCE NIGHTLY
     Route: 048
     Dates: start: 2024, end: 2024
  4. LUMRYZ [Suspect]
     Active Substance: SODIUM OXYBATE
     Indication: Rapid eye movement sleep behaviour disorder
  5. LUMRYZ [Suspect]
     Active Substance: SODIUM OXYBATE
     Indication: Narcolepsy
     Dosage: 7.5 G, ONCE NIGHTLY AT BEDTIME
     Route: 048
     Dates: start: 2024, end: 202403
  6. LUMRYZ [Suspect]
     Active Substance: SODIUM OXYBATE
     Indication: Rapid eye movement sleep behaviour disorder
     Dosage: 7.5 G, ONCE
     Dates: start: 20240408, end: 20240408
  7. LUMRYZ [Suspect]
     Active Substance: SODIUM OXYBATE
     Indication: Narcolepsy
     Dosage: 9 G, ONCE NIGHTLY
     Route: 048
     Dates: start: 20240319, end: 20240406
  8. LUMRYZ [Suspect]
     Active Substance: SODIUM OXYBATE
     Indication: Rapid eye movement sleep behaviour disorder
     Dosage: 9 G, ONCE NIGHTLY
     Route: 048
     Dates: start: 2024, end: 2024
  9. LUMRYZ [Suspect]
     Active Substance: SODIUM OXYBATE
     Dosage: 9 G, ONCE NIGHTLY
     Route: 048
     Dates: start: 2024, end: 2024
  10. LUMRYZ [Suspect]
     Active Substance: SODIUM OXYBATE
     Dosage: 9 G, ONCE NIGHTLY
     Route: 048
     Dates: start: 2024
  11. TUMS [Suspect]
     Active Substance: CALCIUM CARBONATE
     Indication: Dyspepsia
     Dosage: UNK
  12. TUMS [Suspect]
     Active Substance: CALCIUM CARBONATE
     Dosage: UNK APPROXIMATELY 30 MINUTES BEFORE TAKING LUMRYZ
     Dates: start: 20240406, end: 20240406
  13. BUSPIRONE HCL [Suspect]
     Active Substance: BUSPIRONE HYDROCHLORIDE
     Dosage: 15 MG, 2X/DAY
     Dates: start: 2024
  14. BUPROPION [Suspect]
     Active Substance: BUPROPION
     Dosage: UNK
  15. OMEGA 3 WITH VITAMIN D3 [Concomitant]
  16. PROGESTERONE [Concomitant]
     Active Substance: PROGESTERONE
  17. CALCIUM CARBONATE\CHOLECALCIFEROL [Concomitant]
     Active Substance: CALCIUM CARBONATE\CHOLECALCIFEROL
  18. OMEGA-3-ACID ETHYL ESTERS [Concomitant]
     Active Substance: OMEGA-3-ACID ETHYL ESTERS
  19. VITAMIN D2 [Concomitant]
     Active Substance: ERGOCALCIFEROL
  20. SYNTHROID [Concomitant]
     Active Substance: LEVOTHYROXINE SODIUM
  21. SUNOSI [Concomitant]
     Active Substance: SOLRIAMFETOL
     Dosage: 150 MG
     Dates: end: 202403
  22. PANTOPRAZOLE SODIUM [Concomitant]
     Active Substance: PANTOPRAZOLE SODIUM
  23. EFFEXOR XR [Concomitant]
     Active Substance: VENLAFAXINE HYDROCHLORIDE
     Dosage: 75 MG, 1X/DAY
  24. CONCERTA [Concomitant]
     Active Substance: METHYLPHENIDATE HYDROCHLORIDE
  25. ADDERALL [Concomitant]
     Active Substance: AMPHETAMINE ASPARTATE\AMPHETAMINE SULFATE\DEXTROAMPHETAMINE SACCHARATE\DEXTROAMPHETAMINE SULFATE
  26. VITAMINS NOS [Concomitant]
     Active Substance: VITAMINS
  27. HERBALS\TURMERIC [Concomitant]
     Active Substance: HERBALS\TURMERIC
  28. VITAMIN B COMPLEX [Concomitant]
     Active Substance: CYANOCOBALAMIN\DEXPANTHENOL\NIACINAMIDE\PYRIDOXINE HYDROCHLORIDE\RIBOFLAVIN 5^-PHOSPHATE SODIUM\THIA
  29. POTASSIUM [Concomitant]
     Active Substance: POTASSIUM
  30. UNSPECIFIED LIVER SUPPLEMENTS [Concomitant]
  31. ETHINYL ESTRADIOL\NORETHINDRONE [Concomitant]
     Active Substance: ETHINYL ESTRADIOL\NORETHINDRONE
  32. UNSPECIFIED INGREDIENT [Concomitant]
     Active Substance: UNSPECIFIED INGREDIENT
  33. VITAMIN C [Concomitant]
     Active Substance: ASCORBIC ACID
  34. CALCIUM [Concomitant]
     Active Substance: CALCIUM
  35. RITALIN [Concomitant]
     Active Substance: METHYLPHENIDATE HYDROCHLORIDE
     Dosage: 10 MG, 1X/DAY
     Dates: start: 202403
  36. ESTROVEN COMPLETE MULTI SYMPTOM MENOPAUSE RELIEF [Concomitant]
  37. CLARITIN-D NOS [Concomitant]
     Active Substance: LORATADINE\PSEUDOEPHEDRINE SULFATE
  38. IMMUNE WITH VITAMIN D [Concomitant]
  39. ASPIRIN [Concomitant]
     Active Substance: ASPIRIN
  40. SERTRALINE HYDROCHLORIDE [Concomitant]
     Active Substance: SERTRALINE HYDROCHLORIDE

REACTIONS (32)
  - Apnoea [Not Recovered/Not Resolved]
  - Sleep apnoea syndrome [Not Recovered/Not Resolved]
  - Middle insomnia [Not Recovered/Not Resolved]
  - Feeling cold [Recovering/Resolving]
  - Illness [Recovering/Resolving]
  - Crying [Recovering/Resolving]
  - Head injury [Unknown]
  - Tenderness [Not Recovered/Not Resolved]
  - Limb injury [Recovering/Resolving]
  - Asthenia [Not Recovered/Not Resolved]
  - Insomnia [Recovering/Resolving]
  - Gastrointestinal disorder [Recovering/Resolving]
  - Facial pain [Not Recovered/Not Resolved]
  - Vomiting projectile [Recovered/Resolved]
  - Sedation [Not Recovered/Not Resolved]
  - Flatulence [Not Recovered/Not Resolved]
  - Feeling abnormal [Not Recovered/Not Resolved]
  - Dysstasia [Unknown]
  - Balance disorder [Unknown]
  - Sudden onset of sleep [Recovered/Resolved]
  - Nausea [Not Recovered/Not Resolved]
  - Dizziness [Unknown]
  - Nocturia [Unknown]
  - Drug ineffective [Unknown]
  - Vomiting [Recovered/Resolved]
  - Pain in extremity [Recovering/Resolving]
  - Unevaluable event [Recovered/Resolved]
  - Weight decreased [Not Recovered/Not Resolved]
  - Hypersensitivity [Unknown]
  - Confusional state [Unknown]
  - Intentional dose omission [Recovered/Resolved]
  - Intentional underdose [Recovered/Resolved]

NARRATIVE: CASE EVENT DATE: 20240101
